FAERS Safety Report 16510549 (Version 1)
Quarter: 2019Q3

REPORT INFORMATION
  Report Type: Spontaneous
  Country: US (occurrence: US)
  Receive Date: 20190702
  Receipt Date: 20190702
  Transmission Date: 20191004
  Serious: No
  Sender: FDA-Public Use
  Company Number: US-AMGEN-USASP2019104177

PATIENT
  Age: 53 Year
  Sex: Male

DRUGS (3)
  1. AIMOVIG [Suspect]
     Active Substance: ERENUMAB-AOOE
     Indication: MIGRAINE
     Dosage: 70 MILLIGRAM
     Route: 065
     Dates: start: 2019
  2. LIDOCAINE. [Concomitant]
     Active Substance: LIDOCAINE
     Indication: MIGRAINE
     Dosage: UNK
  3. CANNABIDIOL [Concomitant]
     Active Substance: CANNABIDIOL
     Indication: MIGRAINE
     Dosage: UNK

REACTIONS (2)
  - Constipation [Not Recovered/Not Resolved]
  - Therapy non-responder [Unknown]

NARRATIVE: CASE EVENT DATE: 2019
